FAERS Safety Report 12498676 (Version 1)
Quarter: 2016Q2

REPORT INFORMATION
  Report Type: Spontaneous
  Country: US (occurrence: None)
  Receive Date: 20160624
  Receipt Date: 20160624
  Transmission Date: 20160815
  Serious: No
  Sender: FDA-Public Use
  Company Number: None

PATIENT
  Age: 54 Year
  Sex: Female
  Weight: 81.65 kg

DRUGS (8)
  1. TURMERIC [Concomitant]
     Active Substance: TURMERIC
  2. VITAMIN D [Concomitant]
     Active Substance: CHOLECALCIFEROL
  3. FISH OIL [Concomitant]
     Active Substance: FISH OIL
  4. CLA [Concomitant]
  5. CAPSAICIN HOT PATCH, 0.025 % [Suspect]
     Active Substance: CAPSAICIN
     Indication: MUSCULOSKELETAL DISCOMFORT
     Dosage: 3 PATCH (ES) ONCE APPLIED AS MEDICATED PATCH TO SKIN
  6. GLUCOSAMINE/CHONDROITIN /08437701/ [Concomitant]
     Active Substance: CHONDROITIN SULFATE (BOVINE)\GLUCOSAMINE SULFATE
  7. MULTIVIT [Concomitant]
     Active Substance: VITAMINS
  8. BENICAR\HCTZ [Concomitant]

REACTIONS (4)
  - Application site warmth [None]
  - Application site pain [None]
  - Application site vesicles [None]
  - Application site burn [None]

NARRATIVE: CASE EVENT DATE: 20160622
